FAERS Safety Report 7235122-3 (Version None)
Quarter: 2011Q1

REPORT INFORMATION
  Report Type: 
  Country: None (occurrence: None)
  Receive Date: 20110107
  Receipt Date: 20101228
  Transmission Date: 20110831
  Serious: Yes (Death)
  Sender: FDA-Public Use
  Company Number: UTC-003810

PATIENT
  Age: 42 Year
  Sex: Male
  Weight: 50.9 kg

DRUGS (2)
  1. REMODULIN [Suspect]
     Dosage: 66.24 UG/KG (0.046 UG/KG,1 IN 1 MIN),INTRAVENOUS ;
     Route: 042
     Dates: start: 20100203, end: 20101225
  2. REVATIO [Concomitant]

REACTIONS (1)
  - DEATH [None]
